FAERS Safety Report 6531888-6 (Version None)
Quarter: 2010Q1

REPORT INFORMATION
  Report Type: 
  Country: None (occurrence: None)
  Receive Date: 20100108
  Receipt Date: 20091230
  Transmission Date: 20100710
  Serious: No
  Sender: FDA-Public Use
  Company Number: US-JNJFOC-20100100437

PATIENT
  Sex: Female
  Weight: 56.7 kg

DRUGS (4)
  1. DURAGESIC-100 [Suspect]
     Indication: PAIN IN EXTREMITY
     Route: 062
  2. DURAGESIC-100 [Suspect]
     Route: 062
  3. PROCARDIA [Concomitant]
     Indication: COMPLEX REGIONAL PAIN SYNDROME
     Route: 048
  4. LORTAB [Concomitant]
     Indication: BREAKTHROUGH PAIN
     Route: 048

REACTIONS (5)
  - FEELING JITTERY [None]
  - INAPPROPRIATE SCHEDULE OF DRUG ADMINISTRATION [None]
  - NAUSEA [None]
  - PAIN [None]
  - PRODUCT QUALITY ISSUE [None]
